FAERS Safety Report 5958005-5 (Version None)
Quarter: 2008Q4

REPORT INFORMATION
  Report Type: 
  Country: None (occurrence: None)
  Receive Date: 20081119
  Receipt Date: 20081110
  Transmission Date: 20090506
  Serious: Yes (Hospitalization, Other)
  Sender: FDA-Public Use
  Company Number: PHHY2008DE27907

PATIENT
  Age: 50 Year
  Sex: Female

DRUGS (2)
  1. LEPONEX [Suspect]
     Dosage: 100 MG, BID
     Route: 048
     Dates: start: 20080601
  2. ASPIRIN [Concomitant]
     Dosage: 100

REACTIONS (4)
  - AGRANULOCYTOSIS [None]
  - FEMUR FRACTURE [None]
  - NEUTROPHIL COUNT DECREASED [None]
  - WHITE BLOOD CELL COUNT DECREASED [None]
